FAERS Safety Report 7352214 (Version 2)
Quarter: 2014Q2

REPORT INFORMATION
  Report Type: Report from Study
  Country: US (occurrence: US)
  Receive Date: 20100412
  Receipt Date: 20140401
  Transmission Date: 20141212
  Serious: No
  Sender: FDA-Public Use
  Company Number: US-ALEXION-A201000146

PATIENT
  Sex: 0

DRUGS (9)
  1. SOLIRIS [Suspect]
     Indication: PAROXYSMAL NOCTURNAL HAEMOGLOBINURIA
     Dosage: 900 MG Q12DAYS
     Route: 042
     Dates: start: 20070511
  2. DILAUDID [Concomitant]
     Indication: PAIN
     Dosage: 2 MG, Q3-4HRS PRN
     Route: 065
     Dates: start: 20100101
  3. MORPHINE [Concomitant]
     Indication: PAIN
     Dosage: 15 MG, Q3-4HRS PRN
     Route: 065
     Dates: start: 20100101
  4. B 12 [Concomitant]
     Indication: PRODUCT USED FOR UNKNOWN INDICATION
     Dosage: 1 TAB QD
     Route: 065
     Dates: start: 20100513
  5. COUMADIN                           /00014802/ [Concomitant]
     Indication: ANTICOAGULANT THERAPY
     Dosage: 15/20MG ON ALTERNATE DAYS
     Route: 065
     Dates: start: 20100513
  6. EFFEXOR [Concomitant]
     Indication: PAIN
     Dosage: 37.5 MG BID
     Route: 065
     Dates: start: 20100513
  7. FOLIC ACID [Concomitant]
     Indication: PRODUCT USED FOR UNKNOWN INDICATION
     Dosage: 1 MG, QD
     Route: 065
     Dates: start: 20100513
  8. VITAMIN D                          /00107901/ [Concomitant]
     Indication: SUPPLEMENTATION THERAPY
     Dosage: 400 U QD
     Route: 065
     Dates: start: 20100513
  9. COPPER [Concomitant]
     Indication: BLOOD COPPER DECREASED
     Dosage: X6 INFUSIONS OVER 2 WEEKS
     Route: 042
     Dates: start: 20101108

REACTIONS (2)
  - Colitis [Unknown]
  - Abdominal pain [Not Recovered/Not Resolved]
